FAERS Safety Report 17098819 (Version 1)
Quarter: 2019Q4

REPORT INFORMATION
  Report Type: Spontaneous
  Country: US (occurrence: US)
  Receive Date: 20191202
  Receipt Date: 20191202
  Transmission Date: 20200122
  Serious: Yes (Other)
  Sender: FDA-Public Use
  Company Number: US-PFIZER INC-2019513623

PATIENT
  Age: 66 Year
  Sex: Male

DRUGS (1)
  1. LORBRENA [Suspect]
     Active Substance: LORLATINIB
     Indication: LUNG NEOPLASM MALIGNANT
     Dosage: 75 MG, UNK

REACTIONS (3)
  - Pneumonitis [Not Recovered/Not Resolved]
  - Insomnia [Not Recovered/Not Resolved]
  - Neoplasm progression [Not Recovered/Not Resolved]
